FAERS Safety Report 11940781 (Version 1)
Quarter: 2016Q1

REPORT INFORMATION
  Report Type: Report from Study
  Country: BR (occurrence: BR)
  Receive Date: 20160122
  Receipt Date: 20160122
  Transmission Date: 20160526
  Serious: Yes (Other)
  Sender: FDA-Public Use
  Company Number: PHHY2016BR004363

PATIENT
  Sex: Female

DRUGS (1)
  1. ACLASTA [Suspect]
     Active Substance: ZOLEDRONIC ACID
     Indication: OSTEOPOROSIS
     Dosage: 5 MG, Q12MO
     Route: 042

REACTIONS (11)
  - Body height decreased [Unknown]
  - Nervousness [Unknown]
  - Aphasia [Unknown]
  - Plantar fasciitis [Unknown]
  - Lordosis [Unknown]
  - Irritability [Unknown]
  - Finger deformity [Unknown]
  - Crying [Unknown]
  - Osteoarthritis [Unknown]
  - Scoliosis [Unknown]
  - Bone pain [Unknown]
